FAERS Safety Report 6261409-7 (Version None)
Quarter: 2009Q3

REPORT INFORMATION
  Report Type: 
  Country: None (occurrence: None)
  Receive Date: 20090709
  Receipt Date: 20090702
  Transmission Date: 20100115
  Serious: Yes (Disabling)
  Sender: FDA-Public Use
  Company Number: JP-ABBOTT-09P-087-0583753-00

PATIENT
  Age: 5 Year

DRUGS (2)
  1. CLARITHROMYCIN [Suspect]
     Indication: INFLAMMATION
     Route: 048
     Dates: start: 20090401, end: 20090501
  2. OTHER CONCOMITANT MEDICATIONS [Concomitant]
     Indication: DRUG USE FOR UNKNOWN INDICATION

REACTIONS (1)
  - SUPRAVENTRICULAR EXTRASYSTOLES [None]
